FAERS Safety Report 5330928-X (Version None)
Quarter: 2007Q2

REPORT INFORMATION
  Report Type: 
  Country: None (occurrence: None)
  Receive Date: 20070522
  Receipt Date: 20070510
  Transmission Date: 20071010
  Serious: Yes (Other)
  Sender: FDA-Public Use
  Company Number: US-ROCHE-459571

PATIENT
  Age: 46 Year
  Sex: Female

DRUGS (6)
  1. PEGASYS [Suspect]
     Dosage: STRENGTH REPORTED AS 180 MCG/0.5 CC.
     Route: 058
     Dates: start: 20060716, end: 20061026
  2. PEGASYS [Suspect]
     Route: 058
     Dates: start: 20061109, end: 20061224
  3. RIBAPAK [Suspect]
     Route: 048
     Dates: start: 20060716, end: 20061026
  4. RIBAPAK [Suspect]
     Route: 048
     Dates: start: 20061109, end: 20061224
  5. PROCRIT [Concomitant]
     Dosage: STRENGTH REPORTED AS 40000 UNITS/CC.
     Route: 058
     Dates: start: 20060808
  6. LEXAPRO [Concomitant]
     Indication: DEPRESSION
     Dosage: FIRST DOSE OF 10 MG DAILY WAS STARTED ON AN UNKNOWN DATE AND WAS INCREASED TO 15 MG DAILY ON 15 AUG+
     Route: 048

REACTIONS (10)
  - ANAEMIA [None]
  - ASTHENIA [None]
  - BACK PAIN [None]
  - DEHYDRATION [None]
  - FATIGUE [None]
  - HYPOTHYROIDISM [None]
  - NAUSEA [None]
  - NEUTROPHIL COUNT DECREASED [None]
  - PAIN IN EXTREMITY [None]
  - WHITE BLOOD CELL COUNT DECREASED [None]
